FAERS Safety Report 5449874-6 (Version None)
Quarter: 2007Q3

REPORT INFORMATION
  Report Type: 
  Country: None (occurrence: None)
  Receive Date: 20070907
  Receipt Date: 20070907
  Transmission Date: 20080115
  Serious: Yes (Hospitalization)
  Sender: FDA-Public Use
  Company Number: None

PATIENT
  Age: 24 Year
  Sex: Female
  Weight: 63.5036 kg

DRUGS (1)
  1. MONISTAT [Suspect]
     Indication: FUNGAL INFECTION
     Dosage: 1 DOSE ONCE VAG
     Route: 067
     Dates: start: 20070905, end: 20070906

REACTIONS (8)
  - APPLICATION SITE DISCHARGE [None]
  - CONDITION AGGRAVATED [None]
  - DISCOMFORT [None]
  - ILL-DEFINED DISORDER [None]
  - TEARFULNESS [None]
  - VAGINAL PAIN [None]
  - VAGINAL SWELLING [None]
  - VULVOVAGINAL PRURITUS [None]
